FAERS Safety Report 12236770 (Version 2)
Quarter: 2016Q2

REPORT INFORMATION
  Report Type: Spontaneous
  Country: GB (occurrence: GB)
  Receive Date: 20160405
  Receipt Date: 20160411
  Transmission Date: 20160815
  Serious: Yes (Death, Other)
  Sender: FDA-Public Use
  Company Number: GB-AUROBINDO-AUR-APL-2016-02759

PATIENT

DRUGS (2)
  1. CITALOPRAM [Suspect]
     Active Substance: CITALOPRAM HYDROBROMIDE
     Indication: ANXIETY
     Dosage: 60 MG, ONCE A DAY
     Route: 065
     Dates: start: 20151001
  2. HEROIN [Suspect]
     Active Substance: DIACETYLMORPHINE
     Indication: DRUG ABUSE

REACTIONS (3)
  - Arrhythmia [Not Recovered/Not Resolved]
  - Sleep apnoea syndrome [Fatal]
  - Toxicity to various agents [Fatal]
